FAERS Safety Report 8802338 (Version 2)
Quarter: 2015Q2

REPORT INFORMATION
  Report Type: Report from Study
  Country: US (occurrence: US)
  Receive Date: 20120921
  Receipt Date: 20150402
  Transmission Date: 20150821
  Serious: Yes (Death)
  Sender: FDA-Public Use
  Company Number: US-ROCHE-1126162

PATIENT
  Age: 61 Year
  Sex: Female

DRUGS (17)
  1. AVASTIN [Suspect]
     Active Substance: BEVACIZUMAB
     Route: 042
     Dates: start: 20081105
  2. AVASTIN [Suspect]
     Active Substance: BEVACIZUMAB
     Route: 042
     Dates: start: 20090408
  3. LEUCOVORIN [Concomitant]
     Active Substance: LEUCOVORIN
     Dosage: ON DAY 1
     Route: 042
     Dates: start: 200808
  4. ALPRAZOLAM. [Concomitant]
     Active Substance: ALPRAZOLAM
  5. OXALIPLATIN. [Suspect]
     Active Substance: OXALIPLATIN
     Indication: PRODUCT USED FOR UNKNOWN INDICATION
     Route: 042
     Dates: start: 200808, end: 200901
  6. DIOVAN [Concomitant]
     Active Substance: VALSARTAN
     Route: 042
  7. AVASTIN [Suspect]
     Active Substance: BEVACIZUMAB
     Route: 042
     Dates: start: 20080929
  8. AVASTIN [Suspect]
     Active Substance: BEVACIZUMAB
     Route: 042
     Dates: start: 20080827
  9. AVASTIN [Suspect]
     Active Substance: BEVACIZUMAB
     Route: 042
     Dates: start: 20090209, end: 20090325
  10. CETUXIMAB [Concomitant]
     Active Substance: CETUXIMAB
     Dosage: 660 MG THEN 60M MG WEEKLY
     Route: 042
     Dates: start: 20090813
  11. AVASTIN [Suspect]
     Active Substance: BEVACIZUMAB
     Indication: RECTOSIGMOID CANCER
     Route: 042
     Dates: start: 20080813
  12. AVASTIN [Suspect]
     Active Substance: BEVACIZUMAB
     Route: 042
     Dates: start: 20081022
  13. AVASTIN [Suspect]
     Active Substance: BEVACIZUMAB
     Route: 042
     Dates: start: 20081119
  14. 5-FLUOROURACIL [Concomitant]
     Active Substance: FLUOROURACIL
     Dosage: ON DAY 1
     Route: 042
     Dates: start: 200808
  15. IRINOTECAN [Concomitant]
     Active Substance: IRINOTECAN
     Route: 042
  16. KYTRIL [Concomitant]
     Active Substance: GRANISETRON HYDROCHLORIDE
     Route: 065
  17. DECADRON [Concomitant]
     Active Substance: DEXAMETHASONE
     Route: 065

REACTIONS (11)
  - Abdominal pain upper [Unknown]
  - Wrist fracture [Unknown]
  - Rash [Recovering/Resolving]
  - Pain [Unknown]
  - Proteinuria [Unknown]
  - Disease progression [Unknown]
  - Neurotoxicity [Unknown]
  - Neuropathy peripheral [Recovered/Resolved]
  - Death [Fatal]
  - Diarrhoea [Unknown]
  - Headache [Unknown]

NARRATIVE: CASE EVENT DATE: 20091223
